FAERS Safety Report 24605369 (Version 1)
Quarter: 2024Q4

REPORT INFORMATION
  Report Type: Spontaneous
  Country: US (occurrence: US)
  Receive Date: 20241111
  Receipt Date: 20241111
  Transmission Date: 20250114
  Serious: No
  Sender: SANOFI AVENTIS
  Company Number: US-SA-2024SA322207

PATIENT
  Age: 67 Year
  Sex: Female

DRUGS (19)
  1. DUPIXENT [Suspect]
     Active Substance: DUPILUMAB
     Indication: Asthma
     Dosage: UNK
     Dates: start: 20240702
  2. TYMLOS [Concomitant]
     Active Substance: ABALOPARATIDE
     Dosage: UNK
  3. CITRATE [Concomitant]
     Active Substance: CITRIC ACID MONOHYDRATE
  4. ENBREL [Concomitant]
     Active Substance: ETANERCEPT
  5. ORENCIA [Concomitant]
     Active Substance: ABATACEPT
  6. CINNAMON [Concomitant]
     Active Substance: CINNAMON
  7. DIETARY SUPPLEMENT\HERBALS\MILK THISTLE [Concomitant]
     Active Substance: MILK THISTLE
  8. HERBALS\TURMERIC [Concomitant]
     Active Substance: HERBALS\TURMERIC
  9. FLUTICASONE [Concomitant]
     Active Substance: FLUTICASONE
  10. VITAMIN C [Concomitant]
     Active Substance: ASCORBIC ACID
  11. GARLIC OIL [Concomitant]
     Active Substance: GARLIC OIL
  12. HERBALS\WITHANIA SOMNIFERA ROOT [Concomitant]
     Active Substance: HERBALS\WITHANIA SOMNIFERA ROOT
  13. FERROUS GLUCONATE [Concomitant]
     Active Substance: FERROUS GLUCONATE
  14. LUTINE [Concomitant]
  15. ZINC [Concomitant]
     Active Substance: ZINC
  16. VITAMIN B12 [Concomitant]
     Active Substance: CYANOCOBALAMIN
  17. SACCHAROMYCES [Concomitant]
     Active Substance: SACCHAROMYCES CEREVISIAE
  18. BETAINE [Concomitant]
     Active Substance: BETAINE
  19. MAGNESIUM [Concomitant]
     Active Substance: MAGNESIUM

REACTIONS (1)
  - Eye disorder [Unknown]

NARRATIVE: CASE EVENT DATE: 20241029
